FAERS Safety Report 8504504-1 (Version None)
Quarter: 2012Q3

REPORT INFORMATION
  Report Type: 
  Country: None (occurrence: None)
  Receive Date: 20120711
  Receipt Date: 20120709
  Transmission Date: 20120928
  Serious: Yes (Other)
  Sender: FDA-Public Use
  Company Number: US-ROCHE-1080309

PATIENT
  Sex: Female
  Weight: 43.13 kg

DRUGS (3)
  1. RIBAVIRIN [Suspect]
     Indication: HEPATITIS C
     Route: 048
     Dates: start: 20111215, end: 20120531
  2. INCIVEK [Suspect]
     Indication: HEPATITIS C
     Route: 048
     Dates: start: 20111215, end: 20120308
  3. PEGASYS [Suspect]
     Indication: HEPATITIS C
     Route: 058
     Dates: start: 20111215, end: 20120531

REACTIONS (5)
  - ANORECTAL DISCOMFORT [None]
  - ORAL DISCOMFORT [None]
  - ORAL PAIN [None]
  - BURNING SENSATION [None]
  - GLOSSODYNIA [None]
